FAERS Safety Report 14815995 (Version 1)
Quarter: 2018Q2

REPORT INFORMATION
  Report Type: Report from Study
  Country: DE (occurrence: DE)
  Receive Date: 20180426
  Receipt Date: 20180426
  Transmission Date: 20180711
  Serious: Yes (Death)
  Sender: FDA-Public Use
  Company Number: DE-VALIDUS PHARMACEUTICALS LLC-DE-2018VAL000694

PATIENT
  Age: 76 Year
  Sex: Male

DRUGS (23)
  1. FUROSEMIDE. [Suspect]
     Active Substance: FUROSEMIDE
     Indication: OEDEMA
     Dosage: UNK
     Route: 048
     Dates: start: 19970702
  2. ASPIRIN                            /00002701/ [Suspect]
     Active Substance: ASPIRIN
     Indication: CORONARY ARTERY DISEASE
     Dosage: 100 MG, QD
     Route: 048
  3. DECORTIN-H                         /00016201/ [Suspect]
     Active Substance: PREDNISOLONE
     Indication: CHRONIC OBSTRUCTIVE PULMONARY DISEASE
     Dosage: 30 MG, QD
     Route: 048
     Dates: start: 19970702
  4. MADOPAR [Suspect]
     Active Substance: BENSERAZIDE HYDROCHLORIDE\LEVODOPA
     Indication: PARKINSON^S DISEASE
     Dosage: 125 MG, QD
     Route: 048
     Dates: start: 19970702
  5. AFONILUM - SLOW RELEASE [Suspect]
     Active Substance: THEOPHYLLINE
     Indication: CHRONIC OBSTRUCTIVE PULMONARY DISEASE
     Dosage: 2 DF, QD
     Route: 048
     Dates: start: 19970717
  6. DECORTIN-H                         /00016201/ [Suspect]
     Active Substance: PREDNISOLONE
     Indication: CHRONIC OBSTRUCTIVE PULMONARY DISEASE
     Dosage: 30 MG, QD
     Route: 048
     Dates: start: 19970702
  7. ACC LONG [Suspect]
     Active Substance: ACETYLCYSTEINE
     Indication: UNEVALUABLE EVENT
  8. UROXATRAL [Concomitant]
     Active Substance: ALFUZOSIN HYDROCHLORIDE
     Indication: PRODUCT USED FOR UNKNOWN INDICATION
     Dosage: UNK
     Dates: start: 19970701
  9. ACC LONG [Suspect]
     Active Substance: ACETYLCYSTEINE
     Indication: CHRONIC OBSTRUCTIVE PULMONARY DISEASE
     Dosage: UNK
     Route: 048
     Dates: start: 19970702
  10. ANTRA                              /00661201/ [Suspect]
     Active Substance: OMEPRAZOLE
     Indication: PROPHYLAXIS
     Dosage: 1 DF, QD
     Route: 048
     Dates: start: 19970704
  11. DIGIMERCK [Concomitant]
     Active Substance: DIGITOXIN
     Indication: PRODUCT USED FOR UNKNOWN INDICATION
     Dosage: UNK
  12. CIPROBAY                           /00697202/ [Concomitant]
     Indication: PRODUCT USED FOR UNKNOWN INDICATION
     Dosage: UNK
  13. ASPIRIN                            /00002701/ [Suspect]
     Active Substance: ASPIRIN
     Indication: THROMBOSIS PROPHYLAXIS
  14. AMARYL [Concomitant]
     Active Substance: GLIMEPIRIDE
     Indication: PRODUCT USED FOR UNKNOWN INDICATION
     Dosage: UNK
  15. FOSINORM [Concomitant]
     Indication: PRODUCT USED FOR UNKNOWN INDICATION
     Dosage: UNK
  16. MONO MACK [Suspect]
     Active Substance: ISOSORBIDE MONONITRATE
     Indication: CORONARY ARTERY DISEASE
     Dosage: 1 DF, QD
     Route: 048
     Dates: start: 19970702
  17. AQUAPHOR (XIPAMIDE) [Suspect]
     Active Substance: XIPAMIDE
     Indication: OEDEMA
     Dosage: UNK
     Route: 048
     Dates: start: 19970709
  18. NORVASC [Concomitant]
     Active Substance: AMLODIPINE BESYLATE
     Indication: PRODUCT USED FOR UNKNOWN INDICATION
     Dosage: UNK
  19. BRONCHOCORT [Suspect]
     Active Substance: BECLOMETHASONE DIPROPIONATE
     Indication: CHRONIC OBSTRUCTIVE PULMONARY DISEASE
     Dosage: 4 DF, QD
     Route: 055
     Dates: start: 19970702
  20. AMPICILLIN AND SULBACTAM [Suspect]
     Active Substance: AMPICILLIN SODIUM\SULBACTAM SODIUM
     Indication: PNEUMONIA
     Dosage: 2 DF, QD
     Route: 048
     Dates: start: 19970702
  21. BERODUAL [Suspect]
     Active Substance: FENOTEROL HYDROBROMIDE\IPRATROPIUM BROMIDE
     Indication: CHRONIC OBSTRUCTIVE PULMONARY DISEASE
     Dosage: 6 DF, QD
     Route: 055
     Dates: start: 19970702
  22. MONO-EMBOLEX [Suspect]
     Active Substance: CERTOPARIN SODIUM
     Indication: THROMBOSIS PROPHYLAXIS
     Dosage: 2 DF, QD
     Route: 058
     Dates: start: 19970702
  23. ISOKET [Concomitant]
     Active Substance: ISOSORBIDE DINITRATE
     Indication: PRODUCT USED FOR UNKNOWN INDICATION
     Dosage: UNK
     Dates: start: 19970701

REACTIONS (8)
  - Mouth ulceration [Fatal]
  - Toxic epidermal necrolysis [Fatal]
  - Stevens-Johnson syndrome [Fatal]
  - Skin erosion [Fatal]
  - Rash vesicular [Fatal]
  - Toxic epidermal necrolysis [Fatal]
  - Conjunctivitis [Fatal]
  - Multiple organ dysfunction syndrome [Fatal]

NARRATIVE: CASE EVENT DATE: 19970711
